FAERS Safety Report 9437437 (Version 1)
Quarter: 2013Q3

REPORT INFORMATION
  Report Type: Spontaneous
  Country: ES (occurrence: None)
  Receive Date: 20130731
  Receipt Date: 20130731
  Transmission Date: 20140515
  Serious: Yes (Other)
  Sender: FDA-Public Use
  Company Number: VAL_02665_2013

PATIENT
  Age: 11 Year
  Sex: Female

DRUGS (5)
  1. ROCALTROL [Suspect]
     Indication: HYPERPARATHYROIDISM SECONDARY
     Dosage: 20 CAPSULES
     Route: 048
     Dates: start: 20130320, end: 20130408
  2. ATORVASTATIN [Concomitant]
  3. COLESTIPOL [Concomitant]
  4. ENALAPRIL [Concomitant]
  5. URSOCHOL (UNKNOWN) [Concomitant]

REACTIONS (1)
  - Erythema multiforme [None]
